FAERS Safety Report 9475795 (Version 3)
Quarter: 2013Q4

REPORT INFORMATION
  Report Type: Spontaneous
  Country: US (occurrence: US)
  Receive Date: 20130826
  Receipt Date: 20131016
  Transmission Date: 20140711
  Serious: No
  Sender: FDA-Public Use
  Company Number: US-PFIZER INC-2013244515

PATIENT
  Age: 33 Year
  Sex: Male
  Weight: 68.03 kg

DRUGS (1)
  1. ADVIL PM [Suspect]
     Indication: INSOMNIA
     Dosage: 400/76 MG (TWO ^CAPLETS^ OF 200/38MG ,ONCE A DAY
     Route: 048
     Dates: start: 20130828, end: 20130829

REACTIONS (3)
  - Drug ineffective [Unknown]
  - Insomnia [Unknown]
  - Middle insomnia [Unknown]
